FAERS Safety Report 13777727 (Version 5)
Quarter: 2017Q3

REPORT INFORMATION
  Report Type: Report from Study
  Country: BR (occurrence: BR)
  Receive Date: 20170721
  Receipt Date: 20170814
  Transmission Date: 20171127
  Serious: Yes (Hospitalization, Congenital Anomaly, Other)
  Sender: FDA-Public Use
  Company Number: BR-BRISTOL-MYERS SQUIBB COMPANY-BMS-2017-064934

PATIENT
  Sex: Female

DRUGS (2)
  1. EFAVIRENZ [Suspect]
     Active Substance: EFAVIRENZ
     Indication: PRODUCT USED FOR UNKNOWN INDICATION
     Dosage: 600 MG, QD
     Route: 064
     Dates: start: 20170417, end: 20170706
  2. LAMIVUDINE,ZIDOVUDINE [Suspect]
     Active Substance: LAMIVUDINE\ZIDOVUDINE
     Indication: PRODUCT USED FOR UNKNOWN INDICATION
     Dosage: 450 MG, Q12H
     Route: 064
     Dates: start: 20170417, end: 20170706

REACTIONS (4)
  - Congenital pyelocaliectasis [Recovered/Resolved]
  - Foetal macrosomia [Unknown]
  - Gastrointestinal disorder [Unknown]
  - Foetal exposure during pregnancy [Unknown]

NARRATIVE: CASE EVENT DATE: 20170706
